FAERS Safety Report 4612059-7 (Version None)
Quarter: 2005Q1

REPORT INFORMATION
  Report Type: 
  Country: None (occurrence: None)
  Receive Date: 20050308
  Receipt Date: 20041129
  Transmission Date: 20050727
  Serious: Yes (Other)
  Sender: FDA-Public Use
  Company Number: 2004UW24458

PATIENT
  Age: 56 Year
  Sex: Male
  Weight: 83.007 kg

DRUGS (1)
  1. CRESTOR [Suspect]
     Indication: HYPERCHOLESTEROLAEMIA
     Dosage: 10 MG QD PO
     Route: 048

REACTIONS (4)
  - INSOMNIA [None]
  - MIDDLE INSOMNIA [None]
  - PARAESTHESIA [None]
  - SOMNOLENCE [None]
